FAERS Safety Report 6044848-9 (Version None)
Quarter: 2009Q1

REPORT INFORMATION
  Report Type: 
  Country: None (occurrence: None)
  Receive Date: 20090121
  Receipt Date: 20090114
  Transmission Date: 20090719
  Serious: Yes (Other)
  Sender: FDA-Public Use
  Company Number: US-RANBAXY-2008US-20028

PATIENT

DRUGS (3)
  1. CLORAZEPATE DIPOTASSIUM [Suspect]
     Indication: CONVULSION
     Dosage: 7.5 MG, TID
     Route: 048
     Dates: start: 20081001
  2. DILANTIN [Suspect]
     Indication: CONVULSION
     Dosage: UNK UNK, TID
     Route: 065
  3. ZONEGRAN [Suspect]
     Indication: CONVULSION
     Dosage: 200.000000 MG, BID
     Route: 065

REACTIONS (1)
  - CONVULSION [None]
